FAERS Safety Report 7323779-8 (Version None)
Quarter: 2011Q1

REPORT INFORMATION
  Report Type: 
  Country: None (occurrence: None)
  Receive Date: 20110301
  Receipt Date: 20110215
  Transmission Date: 20110831
  Serious: Yes (Hospitalization)
  Sender: FDA-Public Use
  Company Number: IT-PFIZER INC-2011041563

PATIENT
  Age: 5 Year
  Sex: Female

DRUGS (3)
  1. IBUPROFEN [Suspect]
     Dosage: UNK, 1 DAY
  2. PARACETAMOL [Suspect]
     Dosage: UNKN, 1 DAY
  3. DIAZEPAM [Suspect]
     Dosage: UNK, 1 DAY

REACTIONS (2)
  - HEPATITIS CHOLESTATIC [None]
  - RENAL FAILURE ACUTE [None]
